FAERS Safety Report 14191416 (Version 2)
Quarter: 2018Q1

REPORT INFORMATION
  Report Type: Spontaneous
  Country: IL (occurrence: IL)
  Receive Date: 20171115
  Receipt Date: 20180309
  Transmission Date: 20180508
  Serious: Yes (Hospitalization, Other)
  Sender: FDA-Public Use
  Company Number: IL-JNJFOC-20171115801

PATIENT
  Age: 77 Year
  Sex: Male

DRUGS (1)
  1. XARELTO [Suspect]
     Active Substance: RIVAROXABAN
     Indication: DEEP VEIN THROMBOSIS
     Route: 048

REACTIONS (7)
  - Disorientation [Not Recovered/Not Resolved]
  - Haemangioma [Recovered/Resolved with Sequelae]
  - Speech disorder [Not Recovered/Not Resolved]
  - Tumour haemorrhage [Recovered/Resolved with Sequelae]
  - Hemiparesis [Not Recovered/Not Resolved]
  - Seizure [Recovered/Resolved with Sequelae]
  - Fall [Recovering/Resolving]
